FAERS Safety Report 5707290-3 (Version None)
Quarter: 2008Q2

REPORT INFORMATION
  Report Type: 
  Country: None (occurrence: None)
  Receive Date: 20080416
  Receipt Date: 20080404
  Transmission Date: 20081010
  Serious: Yes (Other)
  Sender: FDA-Public Use
  Company Number: PHEH2008US03634

PATIENT
  Sex: Female

DRUGS (1)
  1. ZELNORM [Suspect]

REACTIONS (5)
  - ANGINA UNSTABLE [None]
  - BLOOD PRESSURE FLUCTUATION [None]
  - CARDIAC FAILURE CONGESTIVE [None]
  - INJURY [None]
  - THROMBOSIS [None]
